FAERS Safety Report 9483866 (Version 1)
Quarter: 2013Q3

REPORT INFORMATION
  Report Type: Report from Study
  Country: BR (occurrence: BR)
  Receive Date: 20130828
  Receipt Date: 20130828
  Transmission Date: 20140515
  Serious: Yes (Hospitalization, Other)
  Sender: FDA-Public Use
  Company Number: PHHY2013BR093381

PATIENT
  Age: 65 Year
  Sex: Male
  Weight: 65 kg

DRUGS (3)
  1. FORASEQ [Suspect]
     Indication: LUNG DISORDER
     Dosage: UKN (1CAPSULE OF EACH TREATMENT), BID
     Dates: start: 2002
  2. SPIRIVA [Concomitant]
     Indication: LUNG DISORDER
     Dosage: UNK UKN, UNK
  3. BAMIFIX [Concomitant]
     Indication: LUNG DISORDER
     Dosage: UNK UKN, BID

REACTIONS (1)
  - Ischaemia [Recovered/Resolved]
